FAERS Safety Report 25865854 (Version 2)
Quarter: 2025Q3

REPORT INFORMATION
  Report Type: Spontaneous
  Country: EU (occurrence: EU)
  Receive Date: 20250930
  Receipt Date: 20250930
  Transmission Date: 20251020
  Serious: Yes (Hospitalization, Other)
  Sender: JOHNSON AND JOHNSON
  Company Number: EU-JNJFOC-20250938869

PATIENT
  Sex: Male

DRUGS (10)
  1. HALOPERIDOL [Interacting]
     Active Substance: HALOPERIDOL
     Indication: Psychotic disorder
  2. RISPERDAL CONSTA [Interacting]
     Active Substance: RISPERIDONE
     Indication: Psychotic disorder
     Dosage: 50 MG/2ML, 1 DOSAGE FROM EVERY 2 MONTHS
     Route: 030
  3. RISPERDAL CONSTA [Interacting]
     Active Substance: RISPERIDONE
  4. RISPERDAL CONSTA [Interacting]
     Active Substance: RISPERIDONE
  5. RISPERDAL CONSTA [Interacting]
     Active Substance: RISPERIDONE
  6. TOPIRAMATE [Interacting]
     Active Substance: TOPIRAMATE
     Indication: Product used for unknown indication
     Dosage: 2 DOSAGE FROM EVERY 1 DAY
  7. METHADONE [Suspect]
     Active Substance: METHADONE HYDROCHLORIDE
     Indication: Product substitution
     Dates: start: 20250825, end: 20250825
  8. CANNABIS SATIVA SUBSP. INDICA TOP [Suspect]
     Active Substance: CANNABIS SATIVA SUBSP. INDICA TOP
     Indication: Product used for unknown indication
     Route: 065
     Dates: end: 20250825
  9. COCAINE [Suspect]
     Active Substance: COCAINE
     Indication: Product used for unknown indication
     Route: 065
     Dates: end: 20250825
  10. SERTRALINE [Suspect]
     Active Substance: SERTRALINE HYDROCHLORIDE
     Indication: Product used for unknown indication

REACTIONS (4)
  - Somnolence [Recovered/Resolved]
  - Bradycardia [Recovered/Resolved]
  - Drug abuse [Recovered/Resolved]
  - Drug interaction [Unknown]

NARRATIVE: CASE EVENT DATE: 20250825
